FAERS Safety Report 8532794-8 (Version None)
Quarter: 2012Q3

REPORT INFORMATION
  Report Type: 
  Country: None (occurrence: None)
  Receive Date: 20120724
  Receipt Date: 20120720
  Transmission Date: 20120928
  Serious: Yes (Life-Threatening, Other)
  Sender: FDA-Public Use
  Company Number: PHEH2012US014278

PATIENT
  Sex: Female
  Weight: 107.3 kg

DRUGS (3)
  1. CELEXA [Suspect]
     Dosage: 60 MG, QD
  2. DIOVAN [Suspect]
     Dosage: 80 MG, QD
  3. SEROQUEL [Suspect]
     Dosage: 200 MG, QD

REACTIONS (6)
  - SUICIDE ATTEMPT [None]
  - RENAL FAILURE [None]
  - RESTLESS LEGS SYNDROME [None]
  - WEIGHT INCREASED [None]
  - DIABETES MELLITUS [None]
  - HYPERTENSION [None]
